FAERS Safety Report 11138012 (Version 1)
Quarter: 2015Q2

REPORT INFORMATION
  Report Type: Spontaneous
  Country: US (occurrence: US)
  Receive Date: 20150526
  Receipt Date: 20150526
  Transmission Date: 20150821
  Serious: No
  Sender: FDA-Public Use
  Company Number: US-MALLINCKRODT-T201404670

PATIENT
  Age: 26 Year
  Sex: Male

DRUGS (8)
  1. METOPROLOL [Concomitant]
     Active Substance: METOPROLOL
     Dosage: UNK
  2. ALLOPURINOL. [Concomitant]
     Active Substance: ALLOPURINOL
     Dosage: UNK
  3. LIPITOR [Concomitant]
     Active Substance: ATORVASTATIN CALCIUM
     Dosage: UNK
  4. DIOVAN [Concomitant]
     Active Substance: VALSARTAN
     Dosage: UNK
  5. IRON [Concomitant]
     Active Substance: IRON
     Dosage: UNK
  6. ASPIRIN. [Concomitant]
     Active Substance: ASPIRIN
     Dosage: UNK
  7. H.P. ACTHAR [Suspect]
     Active Substance: CORTICOTROPIN
     Indication: FOCAL SEGMENTAL GLOMERULOSCLEROSIS
     Dosage: 80 UNIT, TWICE WKLY
     Route: 058
     Dates: start: 20141002
  8. H.P. ACTHAR [Suspect]
     Active Substance: CORTICOTROPIN
     Dosage: 80 UNIT, TWICE WKLY
     Route: 058
     Dates: start: 20140315, end: 20140618

REACTIONS (11)
  - Proteinuria [Unknown]
  - Irritability [Unknown]
  - Oedema peripheral [Unknown]
  - Cushingoid [Unknown]
  - Abdominal distension [Unknown]
  - Decreased appetite [Unknown]
  - Blood pressure decreased [Unknown]
  - Localised oedema [Unknown]
  - Blood glucose fluctuation [Unknown]
  - Fatigue [Unknown]
  - Blood albumin decreased [Unknown]

NARRATIVE: CASE EVENT DATE: 20130315
